FAERS Safety Report 9221984 (Version 1)
Quarter: 2013Q2

REPORT INFORMATION
  Report Type: Spontaneous
  Country: US (occurrence: None)
  Receive Date: 20130410
  Receipt Date: 20130410
  Transmission Date: 20140414
  Serious: Yes (Hospitalization)
  Sender: FDA-Public Use
  Company Number: None

PATIENT
  Age: 71 Year
  Sex: Male
  Weight: 104.4 kg

DRUGS (1)
  1. WARFARIN [Suspect]
     Indication: PULMONARY EMBOLISM
     Dosage: 2.5 MG  EVERY DAY  PO
     Route: 048
     Dates: start: 20110318, end: 20130402

REACTIONS (1)
  - International normalised ratio decreased [None]
